FAERS Safety Report 6027617-5 (Version None)
Quarter: 2009Q1

REPORT INFORMATION
  Report Type: 
  Country: None (occurrence: None)
  Receive Date: 20090105
  Receipt Date: 20081222
  Transmission Date: 20090719
  Serious: Yes (Other)
  Sender: FDA-Public Use
  Company Number: NL-ROCHE-604596

PATIENT
  Age: 7 Year
  Sex: Male

DRUGS (12)
  1. MYCOPHENOLATE MOFETIL [Suspect]
     Indication: NEPHROTIC SYNDROME
     Route: 065
  2. MYCOPHENOLATE MOFETIL [Suspect]
     Route: 065
  3. CYCLOSPORINE [Suspect]
     Indication: NEPHROTIC SYNDROME
     Route: 065
  4. PREDNISONE TAB [Suspect]
     Indication: NEPHROTIC SYNDROME
     Route: 065
  5. PREDNISONE TAB [Suspect]
     Dosage: DOSAGE TAPERED.
     Route: 065
  6. PREDNISONE TAB [Suspect]
     Route: 065
  7. PREDNISONE TAB [Suspect]
     Route: 065
  8. METHYLPREDNISOLONE 16MG TAB [Suspect]
     Indication: NEPHROTIC SYNDROME
     Route: 065
  9. METHYLPREDNISOLONE 16MG TAB [Suspect]
     Dosage: ROUTE: INTRAVENOUS.
     Route: 065
  10. CYCLOPHOSPHAMIDE [Suspect]
     Indication: NEPHROTIC SYNDROME
     Route: 065
  11. TACROLIMUS [Suspect]
     Indication: NEPHROTIC SYNDROME
     Dosage: TROUGH LEVEL 7 TO 10 MG/L.
     Route: 065
  12. TACROLIMUS [Suspect]
     Route: 065

REACTIONS (3)
  - FOCAL SEGMENTAL GLOMERULOSCLEROSIS [None]
  - PROTEINURIA [None]
  - RESPIRATORY TRACT INFECTION [None]
